FAERS Safety Report 15403809 (Version 1)
Quarter: 2018Q3

REPORT INFORMATION
  Report Type: Spontaneous
  Country: US (occurrence: US)
  Receive Date: 20180919
  Receipt Date: 20180919
  Transmission Date: 20181010
  Serious: Yes (Other)
  Sender: FDA-Public Use
  Company Number: US-SUPERNUS PHARMACEUTICALS, INC.-2018SUP00263

PATIENT
  Sex: Male
  Weight: 78.01 kg

DRUGS (10)
  1. OXTELLAR XR [Suspect]
     Active Substance: OXCARBAZEPINE
     Dosage: 600 MG, 1X/DAY
     Route: 048
     Dates: start: 2018, end: 2018
  2. ELIQUIS [Concomitant]
     Active Substance: APIXABAN
     Dosage: 5 MG, 2X/DAY
     Dates: start: 20161101
  3. OXTELLAR XR [Suspect]
     Active Substance: OXCARBAZEPINE
     Dosage: 150 MG, 1X/DAY AT MIDNIGHT
     Route: 048
     Dates: start: 201808
  4. OXTELLAR XR [Suspect]
     Active Substance: OXCARBAZEPINE
     Indication: SEIZURE
     Dosage: 300 MG, 1X/DAY
     Route: 048
     Dates: start: 2018, end: 2018
  5. MULTIVITAMIN [Concomitant]
     Active Substance: VITAMINS
  6. OXTELLAR XR [Suspect]
     Active Substance: OXCARBAZEPINE
     Dosage: ^WEANED OFF^
     Route: 048
     Dates: start: 2018, end: 201807
  7. SUPER B [Concomitant]
  8. CALCIUM [Concomitant]
     Active Substance: CALCIUM
  9. OXTELLAR XR [Suspect]
     Active Substance: OXCARBAZEPINE
     Indication: VESTIBULAR DISORDER
     Dosage: 150 MG, 1X/DAY
     Route: 048
     Dates: start: 2018, end: 2018
  10. LEVOXYL [Concomitant]
     Active Substance: LEVOTHYROXINE SODIUM

REACTIONS (13)
  - Aphasia [Recovered/Resolved]
  - Loss of consciousness [Recovered/Resolved]
  - Fatigue [Not Recovered/Not Resolved]
  - Diplopia [Not Recovered/Not Resolved]
  - Headache [Unknown]
  - Head discomfort [Recovering/Resolving]
  - Nausea [Recovering/Resolving]
  - Somnolence [Not Recovered/Not Resolved]
  - Paraesthesia [Recovering/Resolving]
  - Dysstasia [Not Recovered/Not Resolved]
  - Coordination abnormal [Not Recovered/Not Resolved]
  - Gait disturbance [Not Recovered/Not Resolved]
  - Weight increased [Unknown]

NARRATIVE: CASE EVENT DATE: 2018
